FAERS Safety Report 22188523 (Version 1)
Quarter: 2023Q2

REPORT INFORMATION
  Report Type: Spontaneous
  Country: US (occurrence: US)
  Receive Date: 20230409
  Receipt Date: 20230409
  Transmission Date: 20230721
  Serious: No
  Sender: FDA-Public Use
  Company Number: US-TEVA-2023-US-2873537

PATIENT

DRUGS (1)
  1. QNASL [Suspect]
     Active Substance: BECLOMETHASONE DIPROPIONATE
     Indication: Product used for unknown indication
     Dosage: 80 MCG
     Route: 065

REACTIONS (7)
  - Nasal congestion [Unknown]
  - Throat irritation [Unknown]
  - Headache [Unknown]
  - Rhinorrhoea [Unknown]
  - Chest discomfort [Unknown]
  - Incorrect dose administered by device [Unknown]
  - Device delivery system issue [Unknown]
